FAERS Safety Report 19457931 (Version 2)
Quarter: 2024Q4

REPORT INFORMATION
  Report Type: Other
  Country: CA (occurrence: CA)
  Receive Date: 20210624
  Receipt Date: 20241128
  Transmission Date: 20250115
  Serious: Yes (Hospitalization, Other)
  Sender: APOTEX
  Company Number: CA-APOTEX-2021AP014961

PATIENT
  Age: 53 Year
  Sex: Female

DRUGS (11)
  1. GEMCITABINE [Suspect]
     Active Substance: GEMCITABINE
     Indication: Adenocarcinoma pancreas
     Dosage: 912 MILLIGRAM
     Route: 042
  2. ABRAXANE [Suspect]
     Active Substance: PACLITAXEL
     Indication: Adenocarcinoma pancreas
     Dosage: UNK
     Route: 042
  3. DURVALUMAB [Suspect]
     Active Substance: DURVALUMAB
     Indication: Adenocarcinoma pancreas
     Dosage: 1500 MILLIGRAM
     Route: 042
  4. TREMELIMUMAB [Suspect]
     Active Substance: TREMELIMUMAB
     Indication: Adenocarcinoma pancreas
     Dosage: 75 MILLIGRAM
     Route: 042
  5. ACETAMINOPHEN [Concomitant]
     Active Substance: ACETAMINOPHEN
     Indication: Pyrexia
     Dosage: UNK
     Route: 065
  6. DEXAMETHASONE [Concomitant]
     Active Substance: DEXAMETHASONE
     Indication: Nausea
     Dosage: UNK
     Route: 065
  7. ERGOCALCIFEROL [Concomitant]
     Active Substance: ERGOCALCIFEROL
     Indication: Supplementation therapy
     Dosage: UNK
     Route: 065
  8. METRONIDAZOLE [Concomitant]
     Active Substance: METRONIDAZOLE
     Indication: Rosacea
     Dosage: UNK
     Route: 065
  9. METRONIDAZOLE [Concomitant]
     Active Substance: METRONIDAZOLE
     Indication: Rash
  10. RABEPRAZOLE [Concomitant]
     Active Substance: RABEPRAZOLE
     Indication: Gastrooesophageal reflux disease
     Dosage: UNK
     Route: 065
  11. RABEPRAZOLE [Concomitant]
     Active Substance: RABEPRAZOLE
     Indication: Dyspepsia

REACTIONS (2)
  - Embolism [Recovered/Resolved]
  - Platelet count decreased [Recovered/Resolved]
